FAERS Safety Report 17894904 (Version 1)
Quarter: 2020Q2

REPORT INFORMATION
  Report Type: Report from Study
  Country: CO (occurrence: CO)
  Receive Date: 20200615
  Receipt Date: 20200615
  Transmission Date: 20200714
  Serious: Yes (Death, Hospitalization)
  Sender: FDA-Public Use
  Company Number: CO-JNJFOC-20200608896

PATIENT
  Age: 64 Year
  Sex: Female
  Weight: 73 kg

DRUGS (2)
  1. SIMPONI [Suspect]
     Active Substance: GOLIMUMAB
     Indication: RHEUMATOID ARTHRITIS
     Route: 058
     Dates: start: 20150721
  2. PREDNISOLONE. [Suspect]
     Active Substance: PREDNISOLONE
     Indication: PAIN

REACTIONS (4)
  - Urinary tract infection [Unknown]
  - Product dose omission [Unknown]
  - Rheumatoid arthritis [Unknown]
  - Renal disorder [Fatal]

NARRATIVE: CASE EVENT DATE: 202005
